FAERS Safety Report 24586550 (Version 1)
Quarter: 2024Q4

REPORT INFORMATION
  Report Type: Report from Study
  Country: BR (occurrence: BR)
  Receive Date: 20241106
  Receipt Date: 20241106
  Transmission Date: 20250114
  Serious: Yes (Other)
  Sender: JOHNSON AND JOHNSON
  Company Number: BR-JNJFOC-20241102785

PATIENT
  Age: 71 Year
  Sex: Female
  Weight: 71 kg

DRUGS (2)
  1. SIMPONI [Suspect]
     Active Substance: GOLIMUMAB
     Indication: Rheumatoid arthritis
     Route: 058
     Dates: start: 202409
  2. SIMPONI [Suspect]
     Active Substance: GOLIMUMAB

REACTIONS (5)
  - Rheumatoid arthritis [Recovering/Resolving]
  - Hypoacusis [Unknown]
  - Influenza [Unknown]
  - Decreased immune responsiveness [Unknown]
  - Memory impairment [Unknown]
